FAERS Safety Report 18286191 (Version 6)
Quarter: 2020Q4

REPORT INFORMATION
  Report Type: Spontaneous
  Country: US (occurrence: US)
  Receive Date: 20200919
  Receipt Date: 20201120
  Transmission Date: 20210113
  Serious: Yes (Death, Other)
  Sender: FDA-Public Use
  Company Number: US-TEVA-2020-US-1829309

PATIENT
  Age: 44 Year
  Sex: Female

DRUGS (49)
  1. CYCLOSPORINE. [Concomitant]
     Active Substance: CYCLOSPORINE
     Indication: DRY EYE
     Route: 047
  2. HYDROXYCHLOROQUINE [Concomitant]
     Active Substance: HYDROXYCHLOROQUINE
     Indication: SJOGREN^S SYNDROME
     Route: 048
  3. VITAMIN K [Concomitant]
     Active Substance: PHYTONADIONE
     Dosage: K1 10000 MCG ONCE PER WEEK, TAKE 90 MCG AND 120 MCG ON ALTERNATING DAYS
     Route: 048
  4. FENTANYL. [Suspect]
     Active Substance: FENTANYL
     Dosage: 50 MCG/HR PATCH, APPLY 1 PATCH TO SKIN EVERY 72 HOURS
  5. CIPROFLOXACIN. [Concomitant]
     Active Substance: CIPROFLOXACIN
     Indication: INFECTION
     Route: 048
  6. VITAMIN B12 [Concomitant]
     Active Substance: CYANOCOBALAMIN
     Indication: FULL BLOOD COUNT DECREASED
     Dosage: METHYL 2.25 AND HYDROXY 1MG
     Route: 060
  7. LEVOCETIRIZINE [Concomitant]
     Active Substance: LEVOCETIRIZINE
     Route: 048
  8. ISOMETHEPTENE-APAP-DICHLORAL [Concomitant]
     Dosage: 65-323-100 CAPSULE: TAKE 2 CAPSULES BY MOUTH AT ONSET OF HEADACHES AND 1 CAPSULE EVERY HOUR AS NEEDE
  9. ZOLMITRIPTAN. [Concomitant]
     Active Substance: ZOLMITRIPTAN
     Dosage: TAKE ONE TABLET BY MOUTH TWICE DAILY AS NEEDED
  10. FENTANYL. [Suspect]
     Active Substance: FENTANYL
     Dosage: 25 MCG/HR PATCH, APPLY 1 PATCH TO SKIN EVERY 72 HOURS
  11. METRONIDAZOLE. [Concomitant]
     Active Substance: METRONIDAZOLE
     Route: 048
  12. MULTIVITAMIN ORAL [Concomitant]
     Dosage: TAKE 2 TABLETS BY MOUTH. ONE A DAY WOMEN^S SENIOR NO IRON
     Route: 048
  13. TRAMADOL. [Suspect]
     Active Substance: TRAMADOL
     Route: 048
  14. FLAGYL [Concomitant]
     Active Substance: METRONIDAZOLE\METRONIDAZOLE HYDROCHLORIDE
  15. RABEPRAZOLE [Concomitant]
     Active Substance: RABEPRAZOLE
     Indication: GASTROOESOPHAGEAL REFLUX DISEASE
     Route: 048
  16. FLUDROCORTISONE ACETATE. [Concomitant]
     Active Substance: FLUDROCORTISONE ACETATE
     Indication: SECONDARY ADRENOCORTICAL INSUFFICIENCY
  17. PROBIOTIC ORAL [Concomitant]
     Route: 048
  18. BIOTIN [Concomitant]
     Active Substance: BIOTIN
     Indication: DRY EYE
     Route: 048
  19. FLUDROCORTISONE ACETATE. [Concomitant]
     Active Substance: FLUDROCORTISONE ACETATE
     Indication: ADDISON^S DISEASE
     Route: 048
  20. MAGNESIUM GLYCINATE PLUS [Concomitant]
     Route: 048
  21. NORTRIPTYLINE [Concomitant]
     Active Substance: NORTRIPTYLINE
  22. POTASSIUM CHLORIDE. [Concomitant]
     Active Substance: POTASSIUM CHLORIDE
     Dosage: 20 MEQ TABLETS CR TAKE 2 CAPSULES (40 MEQ) BY MOUTH TWICE DAILY; TREATS LOW BLOOD POTASSIUM LEVELS
     Route: 048
  23. REFRESH OPHTHALMIC [Concomitant]
     Dosage: 1-2 DROPS BY OPHTHALMIC ROUTE EVERY 1 HR EYE DROPS
     Route: 047
  24. VITAMIN A [Concomitant]
     Active Substance: VITAMIN A
     Dosage: 25000 UNIT CAPSULE: TAKE 2 CAPSULES BY MOUTH TWICE DAILY
     Route: 048
  25. VITAMIN E [Concomitant]
     Active Substance: .ALPHA.-TOCOPHEROL
     Dosage: 400 UNITS CAPSULE: 400 UNITS BY MOUTH
     Route: 048
  26. ARTIFICIAL TEARS OINTMENTS [Concomitant]
     Indication: DRY EYE
     Dosage: IN BOTH EYES BED TIMES
     Route: 047
  27. CALCIUM CITRATE [Concomitant]
     Active Substance: CALCIUM CITRATE
     Dosage: 3000MG TWICE DAILY
     Route: 048
  28. FOLIC ACID. [Concomitant]
     Active Substance: FOLIC ACID
     Dosage: 1.5 MG SL METHYL AND 800 MCG OF ORAL METHYL
     Route: 048
  29. GABAPENTIN. [Concomitant]
     Active Substance: GABAPENTIN
     Dosage: : 1 BY MOUTH EVERY MORNING , 1 MIDDAY, 2 AT BEDTIME
     Route: 048
  30. PROGESTERONE MICRONIZED [Concomitant]
     Dosage: TAKE 1 TO 2 CAPSULES BY MOUTH AT BEDTIME START WITH 1 CAPSULE
     Route: 048
  31. THYROID [Concomitant]
     Active Substance: LEVOTHYROXINE\LIOTHYRONINE
     Indication: HYPOTHYROIDISM
     Dosage: 5-6 TABS BY MOUTH DAILY
     Route: 048
  32. TOPIRAMATE. [Concomitant]
     Active Substance: TOPIRAMATE
     Indication: MIGRAINE
     Route: 048
  33. URSODIOL. [Concomitant]
     Active Substance: URSODIOL
     Route: 048
  34. VITAMIN C [Concomitant]
     Active Substance: ASCORBIC ACID
     Dosage: 1000 MG BY MOUTH 3 TIMES DAILY
     Route: 048
  35. VITAMIN B COMPLEX [Concomitant]
     Active Substance: CYANOCOBALAMIN\DEXPANTHENOL\NIACINAMIDE\PYRIDOXINE HYDROCHLORIDE\RIBOFLAVIN 5^-PHOSPHATE SODIUM\THIAMINE HYDROCHLORIDE\VITAMIN B COMPLEX
     Indication: DRY EYE
     Dosage: 1 -2 TABS BY MOUTH DAILY
     Route: 048
  36. CHOLECALCIFEROL [Concomitant]
     Active Substance: CHOLECALCIFEROL
     Dosage: 1000 UNIT TABLET BY MOUTH DAILY
     Route: 049
  37. HYOSCYAMINE SULFATE. [Concomitant]
     Active Substance: HYOSCYAMINE SULFATE
     Indication: IRRITABLE BOWEL SYNDROME
     Dosage: HYOSCYAMINE SULFATE SL 0,125 MG SL TABLET: DISSOLVE 0.375 MG UNDER TONGUE 3 TIMES DAILY AS NEEDED
     Route: 060
  38. LINEZOLID. [Concomitant]
     Active Substance: LINEZOLID
     Route: 048
  39. LIOTHYRONINE [Concomitant]
     Active Substance: LIOTHYRONINE
     Route: 048
  40. LORAZEPAM. [Concomitant]
     Active Substance: LORAZEPAM
     Indication: MUSCLE SPASMS
  41. OXYCODONE [Suspect]
     Active Substance: OXYCODONE
     Indication: PAIN
     Route: 048
  42. FLUCONAZOLE. [Concomitant]
     Active Substance: FLUCONAZOLE
     Dosage: 400 MILLIGRAM DAILY;
     Route: 048
  43. IBUPROFEN. [Concomitant]
     Active Substance: IBUPROFEN
     Dosage: 2400 MILLIGRAM DAILY;
     Route: 048
  44. ESTRADIOL. [Concomitant]
     Active Substance: ESTRADIOL
     Indication: HORMONE LEVEL ABNORMAL
     Dosage: ESTRADIOL 0.1 MG/24HR PATCH WEEKLY
  45. FLUTICASONE PROPIONATE. [Concomitant]
     Active Substance: FLUTICASONE PROPIONATE
     Indication: NASAL CONGESTION
     Dosage: 50 MCG/ACT SUSPENSIONS SPRAY IN EACH NOSTRILS TWICE DAILY
     Route: 045
  46. LORAZEPAM. [Concomitant]
     Active Substance: LORAZEPAM
     Indication: GASTROINTESTINAL PAIN
     Route: 048
  47. ONDANSETRON [Concomitant]
     Active Substance: ONDANSETRON
     Dosage: 8MG DISINTEGRATING TABLETS TAKE BY MOUTH 3 TIMES DAILY AS NEEDED
     Route: 048
  48. SELENIUM [Concomitant]
     Active Substance: SELENIUM
     Route: 048
  49. ZINC. [Concomitant]
     Active Substance: ZINC
     Dosage: TAKE 3 CAPSULES BY MOUTH
     Route: 048

REACTIONS (7)
  - Overdose [Fatal]
  - Small intestinal obstruction [Fatal]
  - Dependence [Unknown]
  - Dehydration [Fatal]
  - Pain [Fatal]
  - Social avoidant behaviour [Unknown]
  - Protein-losing gastroenteropathy [Fatal]

NARRATIVE: CASE EVENT DATE: 2014
